FAERS Safety Report 7753297-4 (Version None)
Quarter: 2011Q3

REPORT INFORMATION
  Report Type: 
  Country: None (occurrence: None)
  Receive Date: 20110915
  Receipt Date: 20110912
  Transmission Date: 20111222
  Serious: Yes (Death, Other)
  Sender: FDA-Public Use
  Company Number: US-PFIZER INC-2011160935

PATIENT
  Sex: Male

DRUGS (1)
  1. CHANTIX [Suspect]
     Indication: SMOKING CESSATION THERAPY
     Dosage: 0.5/1MG
     Dates: start: 20090601, end: 20090701

REACTIONS (5)
  - COMPLETED SUICIDE [None]
  - HOMICIDAL IDEATION [None]
  - DEPRESSION [None]
  - ANXIETY [None]
  - AGGRESSION [None]
